FAERS Safety Report 7636795-3 (Version None)
Quarter: 2011Q3

REPORT INFORMATION
  Report Type: 
  Country: None (occurrence: None)
  Receive Date: 20110726
  Receipt Date: 20100930
  Transmission Date: 20111222
  Serious: No
  Sender: FDA-Public Use
  Company Number: US-MUTUAL PHARMACEUTICAL COMPANY, INC.-2010P1001747

PATIENT
  Sex: Female
  Weight: 66.91 kg

DRUGS (2)
  1. DOXYCYCLINE HYCLATE [Suspect]
     Indication: BRONCHITIS
     Route: 048
     Dates: start: 20100929, end: 20100929
  2. MULTI-VITAMIN [Concomitant]
     Route: 048

REACTIONS (2)
  - HEADACHE [None]
  - VISION BLURRED [None]
